FAERS Safety Report 4944833-1 (Version None)
Quarter: 2006Q1

REPORT INFORMATION
  Report Type: 
  Country: None (occurrence: None)
  Receive Date: 20060315
  Receipt Date: 20051207
  Transmission Date: 20060701
  Serious: Yes (Death, Hospitalization, Other)
  Sender: FDA-Public Use
  Company Number: US-MERCK-0512USA01292

PATIENT
  Age: 74 Year
  Sex: Female
  Weight: 67 kg

DRUGS (8)
  1. ATACAND [Concomitant]
     Route: 065
  2. EVISTA [Concomitant]
     Route: 065
  3. VIOXX [Suspect]
     Indication: OSTEOPOROSIS
     Route: 048
     Dates: start: 20000701, end: 20031026
  4. VIOXX [Suspect]
     Indication: ARTHRALGIA
     Route: 048
     Dates: start: 20000701, end: 20031026
  5. ARAVA [Concomitant]
     Route: 065
  6. PREDNISONE [Concomitant]
     Route: 065
  7. KEFLEX [Concomitant]
     Route: 065
  8. SYNTHROID [Concomitant]
     Route: 065

REACTIONS (15)
  - ASTHMA [None]
  - CATARACT [None]
  - COUGH [None]
  - DEATH [None]
  - DIARRHOEA [None]
  - DIVERTICULITIS [None]
  - DYSPNOEA [None]
  - FEMUR FRACTURE [None]
  - MONARTHRITIS [None]
  - MYOCARDIAL INFARCTION [None]
  - OEDEMA PERIPHERAL [None]
  - PAIN IN EXTREMITY [None]
  - ROAD TRAFFIC ACCIDENT [None]
  - SINUSITIS [None]
  - URINARY TRACT INFECTION [None]
